FAERS Safety Report 21401928 (Version 1)
Quarter: 2022Q3

REPORT INFORMATION
  Report Type: Spontaneous
  Country: US (occurrence: None)
  Receive Date: 20220930
  Receipt Date: 20220930
  Transmission Date: 20221027
  Serious: Yes (Life-Threatening)
  Sender: FDA-Public Use
  Company Number: None

PATIENT
  Age: 35 Year
  Sex: Female
  Weight: 65 kg

DRUGS (1)
  1. FERINJECT [Suspect]
     Active Substance: FERRIC CARBOXYMALTOSE
     Indication: Iron deficiency anaemia
     Dates: start: 20190212, end: 20190213

REACTIONS (8)
  - Infusion related reaction [None]
  - Rash [None]
  - Nausea [None]
  - Chest pain [None]
  - Abdominal pain [None]
  - Heart rate decreased [None]
  - Oxygen saturation decreased [None]
  - Blood pressure decreased [None]

NARRATIVE: CASE EVENT DATE: 20220809
